FAERS Safety Report 11518689 (Version 2)
Quarter: 2017Q1

REPORT INFORMATION
  Report Type: Spontaneous
  Country: FR (occurrence: FR)
  Receive Date: 20150917
  Receipt Date: 20170322
  Transmission Date: 20170428
  Serious: Yes (Disabling, Congenital Anomaly)
  Sender: FDA-Public Use
  Company Number: FR-ABBVIE-15P-056-1464723-00

PATIENT
  Sex: Male

DRUGS (1)
  1. DEPAKINE [Suspect]
     Active Substance: VALPROATE SODIUM
     Indication: MATERNAL EXPOSURE TIMING UNSPECIFIED
     Route: 064

REACTIONS (24)
  - Congenital hand malformation [Unknown]
  - Intellectual disability [Unknown]
  - Autism [Unknown]
  - Pharyngeal disorder [Unknown]
  - Rhinitis [Unknown]
  - Deafness [Unknown]
  - Nasal disorder [Unknown]
  - Foetal anticonvulsant syndrome [Unknown]
  - Myopia [Unknown]
  - Developmental delay [Unknown]
  - Ear disorder [Unknown]
  - Congenital foot malformation [Unknown]
  - Congenital oral malformation [Unknown]
  - Activities of daily living impaired [Unknown]
  - Hypotonia [Unknown]
  - Plagiocephaly [Unknown]
  - Abnormal behaviour [Unknown]
  - Strabismus [Unknown]
  - Dysmorphism [Unknown]
  - Foetal exposure during pregnancy [Unknown]
  - Motor developmental delay [Unknown]
  - Astigmatism [Unknown]
  - Hypospadias [Unknown]
  - Ear infection [Unknown]

NARRATIVE: CASE EVENT DATE: 20000111
